FAERS Safety Report 7647586-1 (Version None)
Quarter: 2011Q3

REPORT INFORMATION
  Report Type: 
  Country: None (occurrence: None)
  Receive Date: 20110801
  Receipt Date: 20110725
  Transmission Date: 20111222
  Serious: Yes (Other)
  Sender: FDA-Public Use
  Company Number: JP-PFIZER INC-2011169303

PATIENT
  Sex: Female

DRUGS (1)
  1. XALATAN [Suspect]
     Indication: NORMAL TENSION GLAUCOMA
     Dosage: UNK
     Route: 047
     Dates: start: 20060601, end: 20100501

REACTIONS (1)
  - VISUAL FIELD DEFECT [None]
